FAERS Safety Report 11006861 (Version 1)
Quarter: 2015Q2

REPORT INFORMATION
  Report Type: Spontaneous
  Country: US (occurrence: US)
  Receive Date: 20150409
  Receipt Date: 20150409
  Transmission Date: 20150821
  Serious: No
  Sender: FDA-Public Use
  Company Number: US-ALLERGAN-1418412US

PATIENT
  Sex: Female

DRUGS (10)
  1. HYDROCODONE [Concomitant]
     Active Substance: HYDROCODONE
  2. PHENELZINE SULFATE. [Concomitant]
     Active Substance: PHENELZINE SULFATE
  3. PROLIA [Concomitant]
     Active Substance: DENOSUMAB
  4. LATISSE [Suspect]
     Active Substance: BIMATOPROST
     Indication: GROWTH OF EYELASHES
     Dosage: 2 GTT, QHS
     Route: 061
     Dates: start: 2014, end: 20140819
  5. ABILIFY [Concomitant]
     Active Substance: ARIPIPRAZOLE
  6. MAXIDENE [Concomitant]
  7. AMBIEN [Concomitant]
     Active Substance: ZOLPIDEM TARTRATE
  8. ZETIA [Concomitant]
     Active Substance: EZETIMIBE
  9. NUVIGIL [Concomitant]
     Active Substance: ARMODAFINIL
  10. BOTOX [Concomitant]
     Active Substance: ONABOTULINUMTOXINA
     Indication: MIGRAINE

REACTIONS (1)
  - Drug ineffective [Unknown]
